FAERS Safety Report 9485456 (Version 3)
Quarter: 2013Q4

REPORT INFORMATION
  Report Type: Spontaneous
  Country: US (occurrence: US)
  Receive Date: 20130829
  Receipt Date: 20131111
  Transmission Date: 20140711
  Serious: Yes (Hospitalization, Other)
  Sender: FDA-Public Use
  Company Number: US-BIOGENIDEC-2013BI077212

PATIENT
  Age: 55 Year
  Sex: Male
  Weight: 72 kg

DRUGS (15)
  1. TYSABRI [Suspect]
     Indication: MULTIPLE SCLEROSIS
     Route: 042
     Dates: start: 20080627, end: 20090630
  2. TYSABRI [Suspect]
     Indication: MULTIPLE SCLEROSIS
     Route: 042
     Dates: start: 20110404, end: 20130807
  3. AMPYRA [Concomitant]
     Route: 048
     Dates: start: 20120925
  4. ACYCLOVIR [Concomitant]
     Dates: start: 20120113
  5. ATENOLOL [Concomitant]
     Dates: start: 20120206
  6. AZITHROMYCIN [Concomitant]
     Dates: start: 20120216
  7. BACLOFEN [Concomitant]
     Route: 048
     Dates: start: 20130326
  8. DIAZEPAM [Concomitant]
     Route: 048
     Dates: start: 20130617
  9. ERYTHROMYCIN [Concomitant]
     Dates: start: 20120209
  10. HYDROCHLOROTHIAZIDE [Concomitant]
     Route: 048
     Dates: start: 20120104
  11. IBUPROFEN [Concomitant]
     Route: 048
     Dates: start: 20130304
  12. MODAFINIL [Concomitant]
     Route: 048
     Dates: start: 20130211
  13. NEOMYCIN-POLYMYXIN-DEXAMETH [Concomitant]
     Dates: start: 20120121
  14. SIMVASTATIN [Concomitant]
     Route: 048
     Dates: start: 20111204
  15. TRAMADOL [Concomitant]
     Route: 048
     Dates: start: 20120209

REACTIONS (5)
  - Progressive multifocal leukoencephalopathy [Not Recovered/Not Resolved]
  - Immune reconstitution inflammatory syndrome [Unknown]
  - Convulsion [Not Recovered/Not Resolved]
  - Diarrhoea [Unknown]
  - Foot fracture [Unknown]
